FAERS Safety Report 23562560 (Version 4)
Quarter: 2025Q1

REPORT INFORMATION
  Report Type: Spontaneous
  Country: US (occurrence: US)
  Receive Date: 20240226
  Receipt Date: 20250122
  Transmission Date: 20250409
  Serious: No
  Sender: SANOFI AVENTIS
  Company Number: US-SA-SAC20240216000234

PATIENT
  Age: 88 Year
  Sex: Female
  Weight: 69.09 kg

DRUGS (30)
  1. DUPIXENT [Suspect]
     Active Substance: DUPILUMAB
     Indication: Dermatitis atopic
  2. DUPIXENT [Suspect]
     Active Substance: DUPILUMAB
     Indication: Dermatitis
     Dosage: 300 MG, QW
     Route: 058
  3. DUPIXENT [Suspect]
     Active Substance: DUPILUMAB
     Dosage: 300 MG, QOW
     Route: 058
  4. DUPIXENT [Suspect]
     Active Substance: DUPILUMAB
     Dosage: 300 MG, QOW
     Route: 058
  5. RESTASIS [Concomitant]
     Active Substance: CYCLOSPORINE
  6. LYRICA [Concomitant]
     Active Substance: PREGABALIN
  7. TYLENOL [Concomitant]
     Active Substance: ACETAMINOPHEN
  8. ASPIRIN [Concomitant]
     Active Substance: ASPIRIN
  9. FLAXSEED [Concomitant]
     Active Substance: FLAX SEED
  10. HYDROCHLOROTHIAZIDE [Concomitant]
     Active Substance: HYDROCHLOROTHIAZIDE
  11. PROLIA [Concomitant]
     Active Substance: DENOSUMAB
  12. PILOCARPINE HYDROCHLORIDE [Concomitant]
     Active Substance: PILOCARPINE HYDROCHLORIDE
  13. MAGNESIUM [Concomitant]
     Active Substance: MAGNESIUM
  14. HYDROXYZINE HYDROCHLORIDE [Concomitant]
     Active Substance: HYDROXYZINE HYDROCHLORIDE
  15. ITRACONAZOLE [Concomitant]
     Active Substance: ITRACONAZOLE
  16. GALANTAMINE HYDROBROMIDE [Concomitant]
     Active Substance: GALANTAMINE HYDROBROMIDE
  17. RESTASIS [Concomitant]
     Active Substance: CYCLOSPORINE
  18. PANTOPRAZOLE SODIUM [Concomitant]
     Active Substance: PANTOPRAZOLE SODIUM
  19. FLUCONAZOLE [Concomitant]
     Active Substance: FLUCONAZOLE
  20. VITAMINS [Concomitant]
     Active Substance: VITAMINS
  21. PREGABALIN [Concomitant]
     Active Substance: PREGABALIN
  22. CITRACAL + D3 [Concomitant]
  23. FLUCONAZOLE [Concomitant]
     Active Substance: FLUCONAZOLE
  24. TYLENOL [Concomitant]
     Active Substance: ACETAMINOPHEN
  25. RESTASIS [Concomitant]
     Active Substance: CYCLOSPORINE
  26. ASPIRIN [Concomitant]
     Active Substance: ASPIRIN
  27. VITAMINS NOS [Concomitant]
     Active Substance: VITAMINS
  28. FLAXSEED [Concomitant]
     Active Substance: FLAX SEED
  29. MAGNESIUM [Concomitant]
     Active Substance: MAGNESIUM
  30. GALANTAMINE [Concomitant]
     Active Substance: GALANTAMINE

REACTIONS (9)
  - COVID-19 [Unknown]
  - Nausea [Unknown]
  - Rosacea [Unknown]
  - Pruritus [Unknown]
  - Therapeutic response shortened [Unknown]
  - Rash [Unknown]
  - Hypersensitivity [Unknown]
  - Dermatitis atopic [Recovering/Resolving]
  - Product use in unapproved indication [Unknown]

NARRATIVE: CASE EVENT DATE: 20240101
